FAERS Safety Report 17102054 (Version 2)
Quarter: 2020Q1

REPORT INFORMATION
  Report Type: Report from Study
  Country: US (occurrence: US)
  Receive Date: 20191202
  Receipt Date: 20200102
  Transmission Date: 20200409
  Serious: No
  Sender: FDA-Public Use
  Company Number: US-ALLERGAN-1948739US

PATIENT
  Sex: Female

DRUGS (4)
  1. CARIPRAZINE HCL 1.5MG CAP (TBD) [Suspect]
     Active Substance: CARIPRAZINE HYDROCHLORIDE
     Indication: BIPOLAR DISORDER
     Dosage: 3 UNK
     Dates: start: 20190909
  2. CARIPRAZINE HCL 1.5MG CAP (TBD) [Suspect]
     Active Substance: CARIPRAZINE HYDROCHLORIDE
     Dosage: 1.5 MG, QD
     Route: 048
     Dates: start: 20190605, end: 20190908
  3. EFFEXOR [Concomitant]
     Active Substance: VENLAFAXINE HYDROCHLORIDE
     Dosage: 150 MG
  4. BENZTROPINE. [Concomitant]
     Active Substance: BENZTROPINE

REACTIONS (3)
  - Visual impairment [Unknown]
  - Eye movement disorder [Unknown]
  - Nystagmus [Unknown]
